FAERS Safety Report 9549177 (Version 1)
Quarter: 2013Q3

REPORT INFORMATION
  Report Type: Spontaneous
  Country: US (occurrence: None)
  Receive Date: 20130923
  Receipt Date: 20130923
  Transmission Date: 20140515
  Serious: No
  Sender: FDA-Public Use
  Company Number: None

PATIENT
  Age: 47 Year
  Sex: Female
  Weight: 68.04 kg

DRUGS (1)
  1. TOPIRAMATE [Suspect]
     Indication: MIGRAINE PROPHYLAXIS
     Route: 048
     Dates: start: 20120326, end: 20120416

REACTIONS (12)
  - Eye pain [None]
  - Vision blurred [None]
  - Malaise [None]
  - Hypermetropia [None]
  - Iris adhesions [None]
  - Photophobia [None]
  - Visual field defect [None]
  - Dry eye [None]
  - Migraine [None]
  - Angle closure glaucoma [None]
  - Impaired work ability [None]
  - Impaired driving ability [None]
